FAERS Safety Report 24582420 (Version 1)
Quarter: 2024Q4

REPORT INFORMATION
  Report Type: Spontaneous
  Country: GB (occurrence: GB)
  Receive Date: 20241106
  Receipt Date: 20241106
  Transmission Date: 20250114
  Serious: Yes (Other)
  Sender: NOVO NORDISK
  Company Number: GB-MHRA-TPP6274589C9395139YC1729786690172

PATIENT
  Age: 63 Year
  Sex: Female
  Weight: 102 kg

DRUGS (14)
  1. NOVORAPID [Suspect]
     Active Substance: INSULIN ASPART
     Indication: Ill-defined disorder
     Dosage: UNK
     Dates: start: 20241017
  2. BISOPROLOL [Concomitant]
     Active Substance: BISOPROLOL\BISOPROLOL FUMARATE
     Indication: Ill-defined disorder
     Dosage: TAKE ONE DAILY
     Dates: start: 20240722
  3. AMOXICILLIN\CLAVULANATE POTASSIUM [Concomitant]
     Active Substance: AMOXICILLIN\CLAVULANATE POTASSIUM
     Indication: Ill-defined disorder
     Dosage: TAKE ONE 3 TIMES/DAY
     Dates: start: 20240819, end: 20240826
  4. ROSUVASTATIN [Concomitant]
     Active Substance: ROSUVASTATIN
     Indication: Ill-defined disorder
     Dosage: TAKE ONE DAILY
     Dates: start: 20240919, end: 20241017
  5. DOXYCYCLINE [Concomitant]
     Active Substance: DOXYCYCLINE
     Indication: Ill-defined disorder
     Dosage: TWO NOW THEN ONE DAILY
     Dates: start: 20241008, end: 20241015
  6. LANSOPRAZOLE [Concomitant]
     Active Substance: LANSOPRAZOLE
     Indication: Ill-defined disorder
     Dosage: TAKE ONE ONCE DAILY
     Dates: start: 20241008
  7. MOMETASONE [Concomitant]
     Active Substance: MOMETASONE
     Indication: Ill-defined disorder
     Dosage: TWO SPRAYS TWICE DAILY
     Dates: start: 20241008
  8. ATORVASTATIN [Concomitant]
     Active Substance: ATORVASTATIN
     Indication: Ill-defined disorder
     Dosage: ONE TO BE TAKEN EACH DAY
     Dates: start: 20230510, end: 20240806
  9. LOSARTAN [Concomitant]
     Active Substance: LOSARTAN
     Indication: Ill-defined disorder
     Dosage: TAKE ONE DAILY
     Dates: start: 20230510
  10. HUMALOG [Concomitant]
     Active Substance: INSULIN LISPRO
     Indication: Ill-defined disorder
     Dosage: USE BEFORE MEALS AS DIRECTED
     Dates: start: 20231011
  11. LEVEMIR [Concomitant]
     Active Substance: INSULIN DETEMIR
     Indication: Ill-defined disorder
     Dosage: TO BE USED MORNING AND AT BEDTIME AS DIRECTED.
     Dates: start: 20231011
  12. METFORMIN [Concomitant]
     Active Substance: METFORMIN HYDROCHLORIDE
     Indication: Ill-defined disorder
     Dosage: 1 TABLETS WITH MAIN MEAL
     Dates: start: 20240305
  13. FUROSEMIDE [Concomitant]
     Active Substance: FUROSEMIDE
     Indication: Ill-defined disorder
     Dosage: TAKE ONE EACH MORNING
     Dates: start: 20240702
  14. RIVAROXABAN [Concomitant]
     Active Substance: RIVAROXABAN
     Indication: Ill-defined disorder
     Dosage: TAKE ONE DAILY
     Dates: start: 20240722

REACTIONS (2)
  - Muscle spasms [Recovered/Resolved]
  - Product use in unapproved indication [Unknown]
